FAERS Safety Report 6220550-5 (Version None)
Quarter: 2009Q2

REPORT INFORMATION
  Report Type: 
  Country: None (occurrence: None)
  Receive Date: 20090610
  Receipt Date: 20090528
  Transmission Date: 20091009
  Serious: Yes (Other)
  Sender: FDA-Public Use
  Company Number: AU-JNJFOC-20070405362

PATIENT
  Sex: Female
  Weight: 95 kg

DRUGS (5)
  1. TOPIRAMATE [Suspect]
     Indication: EPILEPSY
     Route: 048
  2. LAMOTRIGINE [Concomitant]
     Indication: EPILEPSY
     Route: 048
  3. ELEVIT [Concomitant]
     Indication: VITAMIN SUPPLEMENTATION
     Route: 048
  4. FOLIC ACID [Concomitant]
     Indication: VITAMIN SUPPLEMENTATION
     Route: 048
  5. CLAVULIN FORTE [Concomitant]
     Indication: ANTIBIOTIC THERAPY
     Route: 048

REACTIONS (3)
  - DRUG EXPOSURE DURING PREGNANCY [None]
  - GESTATIONAL DIABETES [None]
  - LOWER RESPIRATORY TRACT INFECTION [None]
